FAERS Safety Report 17725183 (Version 2)
Quarter: 2022Q1

REPORT INFORMATION
  Report Type: Spontaneous
  Country: GB (occurrence: GB)
  Receive Date: 20200429
  Receipt Date: 20220210
  Transmission Date: 20220423
  Serious: Yes (Congenital Anomaly, Other)
  Sender: FDA-Public Use
  Company Number: None

PATIENT
  Sex: Male

DRUGS (10)
  1. ONDANSETRON [Suspect]
     Active Substance: ONDANSETRON
     Indication: Vomiting
     Dosage: 4 MILLIGRAM
     Route: 064
  2. CYCLIZINE [Concomitant]
     Active Substance: CYCLIZINE
     Indication: Vomiting
     Dosage: UNK
     Route: 064
  3. CYCLIZINE [Concomitant]
     Active Substance: CYCLIZINE
     Dosage: 50 MILLIGRAM, QD (14)
     Route: 064
  4. PREDNISOLONE [Concomitant]
     Active Substance: PREDNISOLONE
     Indication: Vomiting
     Dosage: 40 MILLIGRAM, QD
     Route: 064
  5. THIAMINE [Concomitant]
     Active Substance: THIAMINE
     Indication: Vomiting
     Dosage: 50 MILLIGRAM, QD (14)
     Route: 064
  6. FOLIC ACID [Concomitant]
     Active Substance: FOLIC ACID
     Indication: Vomiting
     Dosage: 5 MILLIGRAM, QD (14)
     Route: 064
  7. METOCLOPRAMIDE [Concomitant]
     Active Substance: METOCLOPRAMIDE
     Indication: Vomiting
     Dosage: 10 MILLIGRAM, QD (55)
     Route: 064
  8. PROCHLORPERAZINE [Concomitant]
     Active Substance: PROCHLORPERAZINE
     Indication: Vomiting
     Dosage: 10 MILLIGRAM, QD (14)
     Route: 064
  9. RANITIDINE [Concomitant]
     Active Substance: RANITIDINE
     Indication: Vomiting
     Dosage: 150 MILLIGRAM, QD (14)
     Route: 064
  10. ONDANSETRON [Concomitant]
     Active Substance: ONDANSETRON
     Indication: Vomiting
     Dosage: 4 MILLIGRAM, QD
     Route: 064

REACTIONS (2)
  - Arteriovenous malformation [Not Recovered/Not Resolved]
  - Foetal exposure during pregnancy [Recovered/Resolved]
